FAERS Safety Report 8397620 (Version 2)
Quarter: 2013Q1

REPORT INFORMATION
  Report Type: Spontaneous
  Country: DE (occurrence: DE)
  Receive Date: 20120209
  Receipt Date: 20130215
  Transmission Date: 20140127
  Serious: Yes (Other)
  Sender: FDA-Public Use
  Company Number: DE-PFIZER INC-2012031557

PATIENT
  Sex: Female

DRUGS (1)
  1. FEMIGOA [Suspect]
     Dosage: UNK
     Dates: start: 1997, end: 20120219

REACTIONS (8)
  - Autoimmune thyroiditis [Unknown]
  - Genital herpes [Not Recovered/Not Resolved]
  - Hepatic cyst [Unknown]
  - Abdominal pain upper [Recovered/Resolved]
  - Varicose vein [Unknown]
  - Weight increased [Unknown]
  - Hot flush [Unknown]
  - Rash [Unknown]
